FAERS Safety Report 6347419-X (Version None)
Quarter: 2009Q3

REPORT INFORMATION
  Report Type: 
  Country: None (occurrence: None)
  Receive Date: 20090910
  Receipt Date: 20090902
  Transmission Date: 20100115
  Serious: Yes (Hospitalization)
  Sender: FDA-Public Use
  Company Number: FR-ASTRAZENECA-2009SE11514

PATIENT
  Age: 62 Year
  Sex: Male

DRUGS (2)
  1. XYLOCAINE [Suspect]
     Indication: ANAESTHESIA
     Route: 007
     Dates: start: 20090729, end: 20090729
  2. SYMBICORT [Concomitant]
     Route: 065

REACTIONS (2)
  - DEPRESSED LEVEL OF CONSCIOUSNESS [None]
  - DYSARTHRIA [None]
